FAERS Safety Report 16456424 (Version 1)
Quarter: 2019Q3

REPORT INFORMATION
  Report Type: Spontaneous
  Country: US (occurrence: US)
  Receive Date: 20190619
  Receipt Date: 20190619
  Transmission Date: 20191004
  Serious: Yes (Other)
  Sender: FDA-Public Use
  Company Number: None

PATIENT
  Age: 39 Year
  Sex: Male
  Weight: 97.65 kg

DRUGS (9)
  1. TEMOZOLOMIDE. [Suspect]
     Active Substance: TEMOZOLOMIDE
     Indication: BRAIN NEOPLASM MALIGNANT
     Route: 048
     Dates: start: 20190222, end: 20190604
  2. TYLENOL [Concomitant]
     Active Substance: ACETAMINOPHEN
  3. MARINOL [Concomitant]
     Active Substance: DRONABINOL
  4. ATENOLOL. [Concomitant]
     Active Substance: ATENOLOL
  5. ZOFRAN [Concomitant]
     Active Substance: ONDANSETRON HYDROCHLORIDE
  6. EMEND [Concomitant]
     Active Substance: APREPITANT
  7. DICLOFENAC [Concomitant]
     Active Substance: DICLOFENAC
  8. TEMOZOLOMIDE. [Suspect]
     Active Substance: TEMOZOLOMIDE
     Indication: BRAIN NEOPLASM MALIGNANT
     Route: 048
     Dates: start: 20190222, end: 20190604
  9. KEPPRA [Concomitant]
     Active Substance: LEVETIRACETAM

REACTIONS (1)
  - Thrombocytopenia [None]
